FAERS Safety Report 11866983 (Version 1)
Quarter: 2015Q4

REPORT INFORMATION
  Report Type: Spontaneous
  Country: US (occurrence: None)
  Receive Date: 20151223
  Receipt Date: 20151223
  Transmission Date: 20160305
  Serious: No
  Sender: FDA-Public Use
  Company Number: None

PATIENT
  Age: 79 Year
  Sex: Male
  Weight: 87.5 kg

DRUGS (2)
  1. CARBOPLATIN. [Suspect]
     Active Substance: CARBOPLATIN
     Dosage: PATIENT^S CHEMOTHERAPY WAS NEVER HELD DUE TO THESE ADVERSE EVENTS; TREATMENT WAS COMPLETED 11/24/2015
     Dates: end: 20151103
  2. TAXOL [Suspect]
     Active Substance: PACLITAXEL
     Dosage: PATIENT^S CHEMOTHERAPY WAS NEVER HELD DUE TO THESE ADVERSE EVENTS; TREATMENT WAS COMPLETED 11/24/2015
     Dates: end: 20151103

REACTIONS (3)
  - White blood cell count abnormal [None]
  - Lymphocyte count decreased [None]
  - Gastroenteritis viral [None]

NARRATIVE: CASE EVENT DATE: 20151104
